FAERS Safety Report 20562542 (Version 1)
Quarter: 2022Q1

REPORT INFORMATION
  Report Type: Spontaneous
  Country: US (occurrence: US)
  Receive Date: 20220307
  Receipt Date: 20220307
  Transmission Date: 20220423
  Serious: Yes (Other)
  Sender: FDA-Public Use
  Company Number: US-JNJFOC-20220256138

PATIENT
  Sex: Male
  Weight: 117 kg

DRUGS (15)
  1. SIMPONI ARIA [Suspect]
     Active Substance: GOLIMUMAB
     Indication: Psoriatic arthropathy
     Route: 042
     Dates: start: 20180820
  2. ASPIRIN [Concomitant]
     Active Substance: ASPIRIN
  3. LIPITOR [Concomitant]
     Active Substance: ATORVASTATIN CALCIUM
  4. BUPROPION [Concomitant]
     Active Substance: BUPROPION
  5. CITALOPRAM [Concomitant]
     Active Substance: CITALOPRAM HYDROBROMIDE
  6. ADDERALL [Concomitant]
     Active Substance: AMPHETAMINE ASPARTATE\AMPHETAMINE SULFATE\DEXTROAMPHETAMINE SACCHARATE\DEXTROAMPHETAMINE SULFATE
  7. FERROUS SULFATE [Concomitant]
     Active Substance: FERROUS SULFATE
  8. LITHIUM [Concomitant]
     Active Substance: LITHIUM
  9. LOPRESSOR [Concomitant]
     Active Substance: METOPROLOL TARTRATE
  10. FISH OIL [Concomitant]
     Active Substance: FISH OIL
  11. PROTONIX [Concomitant]
     Active Substance: PANTOPRAZOLE SODIUM
  12. TADALAFIL [Concomitant]
     Active Substance: TADALAFIL
  13. TAMSULOSIN [Concomitant]
     Active Substance: TAMSULOSIN
  14. ERGOCALCIFEROL [Concomitant]
     Active Substance: ERGOCALCIFEROL
  15. ZETIA [Concomitant]
     Active Substance: EZETIMIBE

REACTIONS (1)
  - Pneumonia [Unknown]
